FAERS Safety Report 15799157 (Version 3)
Quarter: 2020Q4

REPORT INFORMATION
  Report Type: Report from Study
  Country: US (occurrence: US)
  Receive Date: 20190108
  Receipt Date: 20201027
  Transmission Date: 20210113
  Serious: Yes (Other)
  Sender: FDA-Public Use
  Company Number: US-JAZZ-2017-US-015471

PATIENT
  Age: 34 Year
  Sex: Female

DRUGS (3)
  1. PERCOCET [Suspect]
     Active Substance: ACETAMINOPHEN\OXYCODONE HYDROCHLORIDE
     Indication: PRODUCT USED FOR UNKNOWN INDICATION
  2. XYREM [Suspect]
     Active Substance: SODIUM OXYBATE
     Indication: NARCOLEPSY
     Dosage: 2.75 G, BID
     Route: 048
     Dates: start: 201711, end: 2017
  3. XYREM [Suspect]
     Active Substance: SODIUM OXYBATE
     Indication: CATAPLEXY
     Dosage: 3 G, QD
     Route: 048
     Dates: start: 2017

REACTIONS (11)
  - Asthenia [Unknown]
  - Hypoglycaemia [Recovering/Resolving]
  - Drug hypersensitivity [Unknown]
  - Condition aggravated [Unknown]
  - Dizziness [Recovering/Resolving]
  - Weight decreased [Recovering/Resolving]
  - Nerve compression [Unknown]
  - Muscular weakness [Recovering/Resolving]
  - Fungal infection [Not Recovered/Not Resolved]
  - Wrong technique in product usage process [Unknown]
  - Memory impairment [Not Recovered/Not Resolved]

NARRATIVE: CASE EVENT DATE: 20180709
